FAERS Safety Report 7059371-2 (Version None)
Quarter: 2010Q4

REPORT INFORMATION
  Report Type: 
  Country: None (occurrence: None)
  Receive Date: 20101025
  Receipt Date: 20101019
  Transmission Date: 20110411
  Serious: Yes (Death, Other)
  Sender: FDA-Public Use
  Company Number: US-CELGENEUS-163-21880-10100088

PATIENT
  Sex: Male
  Weight: 71.732 kg

DRUGS (13)
  1. REVLIMID [Suspect]
     Indication: MULTIPLE MYELOMA
     Route: 048
     Dates: start: 20100624
  2. REVLIMID [Suspect]
     Route: 048
     Dates: start: 20100716, end: 20100101
  3. ASPIRIN [Concomitant]
     Indication: THROMBOSIS PROPHYLAXIS
     Route: 048
     Dates: end: 20100101
  4. EPOGEN [Concomitant]
     Indication: PRODUCT USED FOR UNKNOWN INDICATION
     Route: 065
  5. BLOOD TRANSFUSION [Concomitant]
     Route: 051
     Dates: start: 20100801, end: 20100801
  6. BLOOD TRANSFUSION [Concomitant]
     Route: 051
     Dates: start: 20100925, end: 20100925
  7. BLOOD TRANSFUSION [Concomitant]
     Route: 051
     Dates: start: 20100926, end: 20100926
  8. DEXAMETHASONE [Concomitant]
     Indication: MULTIPLE MYELOMA
     Route: 048
  9. ALLOPURINOL [Concomitant]
     Indication: PRODUCT USED FOR UNKNOWN INDICATION
     Route: 048
  10. CARVEDILOL [Concomitant]
     Indication: PRODUCT USED FOR UNKNOWN INDICATION
     Route: 048
  11. SIMVASTATIN [Concomitant]
     Indication: PRODUCT USED FOR UNKNOWN INDICATION
     Route: 048
  12. VICODIN [Concomitant]
     Indication: PAIN
     Dosage: 5-500 MG
     Route: 048
  13. ATIVAN [Concomitant]
     Indication: ANXIETY
     Dosage: SMALL DOSE
     Route: 065
     Dates: start: 20100926, end: 20100926

REACTIONS (3)
  - CARDIAC FAILURE CONGESTIVE [None]
  - PANCYTOPENIA [None]
  - RENAL FAILURE ACUTE [None]
